FAERS Safety Report 21496779 (Version 1)
Quarter: 2022Q4

REPORT INFORMATION
  Report Type: Spontaneous
  Country: FR (occurrence: FR)
  Receive Date: 20221022
  Receipt Date: 20221022
  Transmission Date: 20230113
  Serious: Yes (Hospitalization)
  Sender: FDA-Public Use
  Company Number: None

PATIENT
  Age: 61 Year
  Sex: Female
  Weight: 51 kg

DRUGS (8)
  1. AZITHROMYCIN [Suspect]
     Active Substance: AZITHROMYCIN
     Indication: Mycobacterium avium complex infection
     Dosage: UNIT DOSE: 250 MG , FREQUENCY TIME : 1 DAY
     Dates: start: 202005, end: 2020
  2. AZITHROMYCIN [Suspect]
     Active Substance: AZITHROMYCIN
     Dosage: UNIT DOSE: 500 MG , FREQUENCY TIME : 1 DAY, THERAPY END DATE : NASK
     Dates: start: 202101
  3. ARIKAYCE [Suspect]
     Active Substance: AMIKACIN
     Indication: Mycobacterium avium complex infection
     Dosage: ARIKAYCE 590 MG, SUSPENSION FOR INHALATION BY NEBULIZER, UNIT DOSE : 590 MG, FREQUENCY TIME :1 DAY,T
     Dates: start: 20210820
  4. MYCOBUTIN [Suspect]
     Active Substance: RIFABUTIN
     Indication: Mycobacterium avium complex infection
     Dosage: 3 TIMES A WEEK, THEN 150 MG/D, THERAPY END DATE : NASK, STRENGTH : 150 MG, UNIT DOSE: 150 MG
     Dates: start: 202103
  5. MYCOBUTIN [Suspect]
     Active Substance: RIFABUTIN
     Dosage: STRENGTH : 150 MG, DURATION : 1 MONTH
     Dates: start: 202012, end: 202101
  6. ETHAMBUTOL HYDROCHLORIDE [Suspect]
     Active Substance: ETHAMBUTOL HYDROCHLORIDE
     Indication: Mycobacterium avium complex infection
     Dosage: UNIT DOSE: 1000 MG , FREQUENCY TIME : 1 DAY, THERAPY END DATE : NASK
     Dates: start: 202103
  7. ETHAMBUTOL HYDROCHLORIDE [Suspect]
     Active Substance: ETHAMBUTOL HYDROCHLORIDE
     Dosage: DURATION : 2 MONTHS
     Dates: start: 202005, end: 202007
  8. ETHAMBUTOL HYDROCHLORIDE [Suspect]
     Active Substance: ETHAMBUTOL HYDROCHLORIDE
     Dosage: DURATION : 1 YEAR
     Dates: start: 201807, end: 201909

REACTIONS (2)
  - Cataract [Not Recovered/Not Resolved]
  - Pyrexia [Not Recovered/Not Resolved]

NARRATIVE: CASE EVENT DATE: 20210701
